FAERS Safety Report 8258553-1 (Version None)
Quarter: 2012Q2

REPORT INFORMATION
  Report Type: 
  Country: None (occurrence: None)
  Receive Date: 20120404
  Receipt Date: 20120330
  Transmission Date: 20120825
  Serious: Yes (Other)
  Sender: FDA-Public Use
  Company Number: GB-GENZYME-CLOF-1001823

PATIENT
  Sex: Female
  Weight: 73.5 kg

DRUGS (17)
  1. EVOLTRA [Suspect]
     Dosage: 39 MG, QD (CYCLE 2)
     Route: 042
     Dates: start: 20070410, end: 20070413
  2. DAUNORUBICIN HCL [Concomitant]
     Indication: MYELODYSPLASTIC SYNDROME
     Dosage: UNK
     Route: 065
     Dates: start: 20070213, end: 20070217
  3. CYTARABINE [Concomitant]
     Indication: MYELODYSPLASTIC SYNDROME
     Dosage: UNK
     Route: 065
     Dates: start: 20070521, end: 20070525
  4. CO-AMILOFRUSE [Concomitant]
     Indication: HYPERTENSION
     Dosage: 5/40 MG, QD
     Route: 048
  5. ALLOPURINOL [Concomitant]
     Indication: GOUT
     Dosage: 300 MG, QD
     Route: 048
  6. GLYBURIDE [Concomitant]
     Indication: DIABETES MELLITUS
     Dosage: 5 MG, QD
     Route: 048
  7. LEVOTHYROXINE SODIUM [Concomitant]
     Indication: THYROIDECTOMY
     Dosage: 50 MCG, QD
     Route: 048
  8. ONDANSETRON [Concomitant]
     Indication: ANTIEMETIC SUPPORTIVE CARE
     Dosage: 8 MG, TID
     Route: 048
  9. ITRACONAZOLE [Concomitant]
     Indication: ANTIFUNGAL PROPHYLAXIS
     Dosage: 200 MG, TID
     Route: 048
     Dates: start: 20070410
  10. DAUNORUBICIN HCL [Concomitant]
     Dosage: UNK
     Route: 065
     Dates: start: 20070521, end: 20070525
  11. ACYCLOVIR [Concomitant]
     Indication: ANTIVIRAL PROPHYLAXIS
     Dosage: 200 MG, TID
     Route: 048
     Dates: start: 20070321
  12. CYCLIZINE [Concomitant]
     Indication: ANTIEMETIC SUPPORTIVE CARE
     Dosage: 50 MG, PRN (PO/IV/IM)
     Route: 065
  13. OMEPRAZOLE [Concomitant]
     Dosage: 20 MG, QD
     Route: 048
     Dates: start: 20070601
  14. EVOLTRA [Suspect]
     Indication: MYELODYSPLASTIC SYNDROME
     Dosage: 39 MG, QD (CYCLE 1)
     Route: 042
     Dates: start: 20070213, end: 20070217
  15. DAUNORUBICIN HCL [Concomitant]
     Dosage: UNK
     Route: 065
     Dates: start: 20070410, end: 20070414
  16. OMEPRAZOLE [Concomitant]
     Indication: ANTACID THERAPY
     Dosage: 40 MG, QD
     Route: 048
     Dates: end: 20070601
  17. ACETAMINOPHEN [Concomitant]
     Indication: PAIN
     Dosage: 1 G, PRN (PO/IV/IM)
     Route: 065

REACTIONS (1)
  - NEUROTOXICITY [None]
